APPROVED DRUG PRODUCT: LUFYLLIN
Active Ingredient: DYPHYLLINE
Strength: 200MG
Dosage Form/Route: TABLET;ORAL
Application: A084566 | Product #001
Applicant: PHARMOBEDIENT CONSULTING LLC
Approved: Approved Prior to Jan 1, 1982 | RLD: No | RS: No | Type: DISCN